FAERS Safety Report 5067540-6 (Version None)
Quarter: 2006Q3

REPORT INFORMATION
  Report Type: 
  Country: None (occurrence: None)
  Receive Date: 20060802
  Receipt Date: 20060725
  Transmission Date: 20061208
  Serious: Yes (Other)
  Sender: FDA-Public Use
  Company Number: 2006UW15165

PATIENT
  Age: 76 Year
  Sex: Female
  Weight: 74.8 kg

DRUGS (3)
  1. TAMOXIFEN CITRATE [Suspect]
     Indication: BREAST CANCER
     Route: 048
  2. FEMARA [Concomitant]
  3. HYZAAR [Concomitant]

REACTIONS (2)
  - HYSTERECTOMY [None]
  - LYMPH NODE CANCER METASTATIC [None]
